FAERS Safety Report 6082511-9 (Version None)
Quarter: 2009Q1

REPORT INFORMATION
  Report Type: 
  Country: None (occurrence: None)
  Receive Date: 20090204
  Receipt Date: 20081009
  Transmission Date: 20090719
  Serious: No
  Sender: FDA-Public Use
  Company Number: 276287

PATIENT
  Age: 27 Year
  Sex: Male
  Weight: 88 kg

DRUGS (4)
  1. NOVOLOG [Suspect]
     Indication: TYPE 1 DIABETES MELLITUS
     Dosage: 8-9 IU, SUBCUTANEOUS
     Route: 058
     Dates: start: 20010101
  2. NOVOLOG [Suspect]
  3. LANTUS [Concomitant]
  4. NOVOFINE 30 (NEEDLE) [Concomitant]

REACTIONS (1)
  - BLOOD GLUCOSE INCREASED [None]
